FAERS Safety Report 4450648-3 (Version None)
Quarter: 2004Q3

REPORT INFORMATION
  Report Type: 
  Country: None (occurrence: None)
  Receive Date: 20040914
  Receipt Date: 20040908
  Transmission Date: 20050211
  Serious: Yes (Hospitalization)
  Sender: FDA-Public Use
  Company Number: 2004224903US

PATIENT
  Sex: Female

DRUGS (1)
  1. CLEOCIN HCL [Suspect]
     Indication: PROPHYLAXIS
     Dosage: ORAL
     Route: 048

REACTIONS (16)
  - ARTHRALGIA [None]
  - ASTHENIA [None]
  - CLOSTRIDIUM COLITIS [None]
  - DEHYDRATION [None]
  - DIZZINESS [None]
  - DYSGEUSIA [None]
  - EATING DISORDER [None]
  - GASTROINTESTINAL DISORDER [None]
  - HEADACHE [None]
  - IMMUNE SYSTEM DISORDER [None]
  - IMPAIRED SELF-CARE [None]
  - INFLAMMATION [None]
  - MALAISE [None]
  - THROAT IRRITATION [None]
  - TINNITUS [None]
  - VOMITING [None]
